FAERS Safety Report 24254747 (Version 7)
Quarter: 2024Q4

REPORT INFORMATION
  Report Type: Spontaneous
  Country: US (occurrence: US)
  Receive Date: 20240827
  Receipt Date: 20241210
  Transmission Date: 20250115
  Serious: No
  Sender: BIOMARIN
  Company Number: US-SA-2024SA240625

PATIENT

DRUGS (10)
  1. ALDURAZYME [Suspect]
     Active Substance: LARONIDASE
     Indication: Mucopolysaccharidosis
     Dosage: 46.4 MG, QW
     Route: 042
     Dates: start: 20200220, end: 20240920
  2. ALDURAZYME [Suspect]
     Active Substance: LARONIDASE
     Dosage: 46.4 MG, QW
     Route: 042
     Dates: start: 20240923
  3. ACETAMINOPHEN [Concomitant]
     Active Substance: ACETAMINOPHEN
     Indication: Product used for unknown indication
  4. EPINEPHRINE [Concomitant]
     Active Substance: EPINEPHRINE
     Indication: Product used for unknown indication
  5. SODIUM CHLORIDE [Concomitant]
     Active Substance: SODIUM CHLORIDE
     Indication: Product used for unknown indication
     Dosage: UNK
  6. SODIUM CHLORIDE [Concomitant]
     Active Substance: SODIUM CHLORIDE
     Indication: Product used for unknown indication
     Dosage: UNK
  7. ENALAPRIL MALEATE [Concomitant]
     Active Substance: ENALAPRIL MALEATE
     Indication: Product used for unknown indication
     Dosage: UNK
  8. LORATADINE [Concomitant]
     Active Substance: LORATADINE
     Indication: Product used for unknown indication
     Dosage: UNK
  9. HEPARIN [Concomitant]
     Active Substance: HEPARIN SODIUM
     Indication: Product used for unknown indication
     Dosage: UNK
  10. Lmx [Concomitant]
     Indication: Product used for unknown indication

REACTIONS (4)
  - Poor venous access [Recovered/Resolved]
  - Fatigue [Unknown]
  - Hypersomnia [Unknown]
  - Poor venous access [Unknown]

NARRATIVE: CASE EVENT DATE: 20240920
